FAERS Safety Report 8483167-8 (Version None)
Quarter: 2012Q2

REPORT INFORMATION
  Report Type: 
  Country: None (occurrence: None)
  Receive Date: 20120625
  Receipt Date: 20120612
  Transmission Date: 20120825
  Serious: Yes (Life-Threatening, Hospitalization)
  Sender: FDA-Public Use
  Company Number: 2012SP027981

PATIENT
  Age: 39 Year
  Sex: Female

DRUGS (9)
  1. ESCITALOPRAM [Concomitant]
  2. ACETAMINOPHEN [Concomitant]
  3. RIBAVIRIN [Suspect]
     Indication: HEPATITIS C
     Dosage: 1200 MG;QD; 800 MG;QD;
     Dates: start: 20120319, end: 20120430
  4. RIBAVIRIN [Suspect]
     Indication: HEPATITIS C
     Dosage: 1200 MG;QD; 800 MG;QD;
     Dates: start: 20120430, end: 20120519
  5. LORAZEPAM [Concomitant]
  6. VICTRELIS [Suspect]
     Indication: HEPATITIS C
     Dosage: 800 MG;Q8H;PO
     Route: 048
     Dates: start: 20120418, end: 20120528
  7. OMEPRAZOLE [Concomitant]
  8. PEGASYS [Suspect]
     Indication: HEPATITIS C
     Dosage: 180 MCG;QW; 135 MCG;QW;
     Dates: start: 20120319, end: 20120504
  9. PEGASYS [Suspect]
     Indication: HEPATITIS C
     Dosage: 180 MCG;QW; 135 MCG;QW;
     Dates: start: 20120504, end: 20120518

REACTIONS (8)
  - HYPONATRAEMIA [None]
  - OEDEMA [None]
  - ANAEMIA [None]
  - RENAL FAILURE [None]
  - PULMONARY HAEMORRHAGE [None]
  - NO THERAPEUTIC RESPONSE [None]
  - THROMBOCYTOPENIA [None]
  - ASTHENIA [None]
